FAERS Safety Report 18134434 (Version 3)
Quarter: 2021Q1

REPORT INFORMATION
  Report Type: Spontaneous
  Country: US (occurrence: US)
  Receive Date: 20200811
  Receipt Date: 20210107
  Transmission Date: 20210419
  Serious: No
  Sender: FDA-Public Use
  Company Number: US-PFIZER INC-2020304509

PATIENT
  Age: 52 Year
  Sex: Female

DRUGS (2)
  1. LETROZOLE. [Suspect]
     Active Substance: LETROZOLE
     Indication: BREAST CANCER FEMALE
     Dosage: 2.5 MG, CYCLIC(2.5 MG DAILY FOR A 28 DAY CYCLE)
     Dates: start: 20190402
  2. IBRANCE [Suspect]
     Active Substance: PALBOCICLIB
     Indication: BREAST CANCER FEMALE
     Dosage: 100 MG, CYCLIC [QD(ONCE A DAY) X 21 DAYS]
     Dates: start: 20190307

REACTIONS (2)
  - Infection [Recovered/Resolved]
  - Dyspnoea [Not Recovered/Not Resolved]
